FAERS Safety Report 23831650 (Version 1)
Quarter: 2024Q2

REPORT INFORMATION
  Report Type: Spontaneous
  Country: US (occurrence: None)
  Receive Date: 20240507
  Receipt Date: 20240507
  Transmission Date: 20240715
  Serious: Yes (Life-Threatening, Hospitalization)
  Sender: FDA-Public Use
  Company Number: None

PATIENT
  Age: 73 Year
  Sex: Male
  Weight: 87.0 kg

DRUGS (1)
  1. HEPARIN SODIUM [Suspect]
     Active Substance: HEPARIN SODIUM
     Indication: Deep vein thrombosis
     Dosage: OTHER STRENGTH : 5000UNT/ML;?FREQUENCY : 3 TIMES A DAY;?
     Route: 058
     Dates: start: 20230813, end: 20230816

REACTIONS (2)
  - Heparin-induced thrombocytopenia [None]
  - Dialysis [None]

NARRATIVE: CASE EVENT DATE: 20230816
